FAERS Safety Report 26171019 (Version 1)
Quarter: 2025Q4

REPORT INFORMATION
  Report Type: Spontaneous
  Country: US (occurrence: US)
  Receive Date: 20251217
  Receipt Date: 20251217
  Transmission Date: 20260117
  Serious: No
  Sender: SANOFI AVENTIS
  Company Number: US-SA-2025SA374192

PATIENT
  Age: 28 Year
  Sex: Female
  Weight: 65.91 kg

DRUGS (16)
  1. DUPIXENT [Suspect]
     Active Substance: DUPILUMAB
     Indication: Dermatitis atopic
     Dosage: 300 MG, QOW
     Route: 058
  2. ABILIFY [Concomitant]
     Active Substance: ARIPIPRAZOLE
  3. HYDROCORTISONE [Concomitant]
     Active Substance: HYDROCORTISONE
  4. TRETINOIN [Concomitant]
     Active Substance: TRETINOIN
  5. MIRENA [Concomitant]
     Active Substance: LEVONORGESTREL
  6. MINOXIDIL [Concomitant]
     Active Substance: MINOXIDIL
  7. BUPROPION [Concomitant]
     Active Substance: BUPROPION
  8. DOXYCYCLINE HYCLATE [Concomitant]
     Active Substance: DOXYCYCLINE HYCLATE
  9. LORAZEPAM [Concomitant]
     Active Substance: LORAZEPAM
  10. QUETIAPINE FUMARATE [Concomitant]
     Active Substance: QUETIAPINE FUMARATE
  11. LAMOTRIGINE [Concomitant]
     Active Substance: LAMOTRIGINE
  12. BUSPIRONE HCL [Concomitant]
     Active Substance: BUSPIRONE HYDROCHLORIDE
  13. BENZOYL PEROXIDE\CLINDAMYCIN [Concomitant]
     Active Substance: BENZOYL PEROXIDE\CLINDAMYCIN
  14. Comirnaty [Concomitant]
  15. FLUAD NOS [Concomitant]
     Active Substance: INFLUENZA VIRUS VACCINE
  16. CLOBETASOL [Concomitant]
     Active Substance: CLOBETASOL

REACTIONS (3)
  - Injection site urticaria [Unknown]
  - Injection site pain [Unknown]
  - Injection site pruritus [Unknown]

NARRATIVE: CASE EVENT DATE: 20250101
